FAERS Safety Report 8687089 (Version 4)
Quarter: 2012Q4

REPORT INFORMATION
  Report Type: Report from Study
  Country: FR (occurrence: FR)
  Receive Date: 20120727
  Receipt Date: 20120920
  Transmission Date: 20130627
  Serious: Yes (Hospitalization)
  Sender: FDA-Public Use
  Company Number: FR-CELGENEUS-056-21880-12070009

PATIENT
  Age: 65 Year
  Sex: Male
  Weight: 80 kg

DRUGS (8)
  1. REVLIMID [Suspect]
     Indication: ACUTE MYELOID LEUKEMIA
     Dosage: 10 Milligram
     Route: 048
     Dates: start: 20120418, end: 20120628
  2. VIDAZA [Suspect]
     Indication: ACUTE MYELOID LEUKEMIA
     Dosage: 1330 Milligram
     Route: 065
     Dates: start: 20120418, end: 20120424
  3. CCNU [Suspect]
     Indication: ACUTE MYELOID LEUKEMIA
     Route: 048
     Dates: start: 20120418, end: 20120418
  4. IDARUBICIN [Suspect]
     Indication: ACUTE MYELOID LEUKEMIA
     Route: 041
     Dates: start: 20120418, end: 20120422
  5. CYTARABINE [Suspect]
     Indication: ACUTE MYELOID LEUKEMIA
     Route: 041
     Dates: start: 20120418, end: 20120424
  6. ROCEPHINE [Concomitant]
     Indication: DRUG USE FOR UNKNOWN INDICATION
     Route: 065
  7. BISOPROLOL [Concomitant]
     Indication: HYPERTENSION
     Route: 065
  8. AMIKLIN [Concomitant]
     Indication: DRUG USE FOR UNKNOWN INDICATION
     Route: 065

REACTIONS (3)
  - Rash generalised [Recovered/Resolved]
  - Febrile bone marrow aplasia [Not Recovered/Not Resolved]
  - Acute myeloid leukaemia [Not Recovered/Not Resolved]
